FAERS Safety Report 16958082 (Version 2)
Quarter: 2019Q4

REPORT INFORMATION
  Report Type: Spontaneous
  Country: US (occurrence: US)
  Receive Date: 20191024
  Receipt Date: 20191112
  Transmission Date: 20200122
  Serious: No
  Sender: FDA-Public Use
  Company Number: US-PFIZER INC-2019457602

PATIENT
  Age: 74 Year
  Sex: Male

DRUGS (1)
  1. ALAVERT ALLERGY [Suspect]
     Active Substance: LORATADINE
     Indication: SINUSITIS
     Dosage: UNK

REACTIONS (1)
  - Therapeutic product effect incomplete [Unknown]
